FAERS Safety Report 7401167-3 (Version None)
Quarter: 2011Q2

REPORT INFORMATION
  Report Type: 
  Country: None (occurrence: None)
  Receive Date: 20110407
  Receipt Date: 20110406
  Transmission Date: 20111010
  Serious: Yes (Death, Life-Threatening, Hospitalization)
  Sender: FDA-Public Use
  Company Number: PHHO2011US05095

PATIENT
  Sex: Female
  Weight: 61 kg

DRUGS (12)
  1. BENADRYL [Concomitant]
     Indication: SWOLLEN TONGUE
  2. DUONEB [Concomitant]
  3. AFINITOR [Suspect]
     Indication: BREAST CANCER METASTATIC
     Dosage: CODE NOT BROKEN
     Route: 048
     Dates: start: 20101223, end: 20110318
  4. PROTONIX [Concomitant]
  5. PACLITAXEL [Suspect]
     Indication: BREAST CANCER METASTATIC
     Dosage: 142 MG
     Route: 042
     Dates: start: 20101223, end: 20110318
  6. METOPROLOL TARTRATE [Concomitant]
  7. CARBOPLATIN [Suspect]
  8. VANCOMYCIN [Suspect]
     Dosage: 1 G, EVERY 12 HOURS
     Dates: start: 20110316
  9. XANAX [Concomitant]
     Indication: ANXIETY
  10. VICODIN [Concomitant]
  11. LOVENOX [Concomitant]
  12. COMPARATOR TRASTUZUMAB [Suspect]
     Indication: BREAST CANCER METASTATIC
     Dosage: 137 MG
     Route: 042
     Dates: start: 20101223, end: 20110318

REACTIONS (13)
  - OEDEMA [None]
  - URINARY TRACT INFECTION [None]
  - TACHYCARDIA [None]
  - PYREXIA [None]
  - HYPOXIA [None]
  - MULTI-ORGAN FAILURE [None]
  - SEPSIS [None]
  - DYSPNOEA [None]
  - PNEUMONIA [None]
  - ANAEMIA [None]
  - ESCHERICHIA INFECTION [None]
  - ASTHENIA [None]
  - RENAL FAILURE ACUTE [None]
